FAERS Safety Report 9826213 (Version 2)
Quarter: 2014Q1

REPORT INFORMATION
  Report Type: Spontaneous
  Country: US (occurrence: US)
  Receive Date: 20140117
  Receipt Date: 20140117
  Transmission Date: 20141002
  Serious: Yes (Hospitalization, Disabling, Other)
  Sender: FDA-Public Use
  Company Number: US-009507513-0706USA00831

PATIENT
  Sex: Female
  Weight: 82.1 kg

DRUGS (7)
  1. FOSAMAX [Suspect]
     Indication: OSTEOPOROSIS
     Route: 048
     Dates: start: 1997, end: 200512
  2. FOSAMAX [Suspect]
     Dosage: 70 MG, UNK
     Route: 048
     Dates: start: 20031107
  3. FOSAMAX [Suspect]
     Dosage: 70 MG, QW
     Route: 048
     Dates: start: 20050810
  4. FOSAMAX PLUS D [Suspect]
     Route: 048
  5. BONIVA [Suspect]
     Indication: OSTEOPOROSIS
     Route: 048
     Dates: start: 200512, end: 20061212
  6. COUMADIN [Concomitant]
     Indication: FACTOR V DEFICIENCY
  7. CYMBALTA [Concomitant]
     Indication: DEPRESSION
     Route: 048

REACTIONS (106)
  - Klebsiella sepsis [Unknown]
  - Thrombocytopenia [Unknown]
  - Factor V deficiency [Unknown]
  - Swelling [Not Recovered/Not Resolved]
  - Bone disorder [Not Recovered/Not Resolved]
  - Tracheostomy [Unknown]
  - Confusional state [Unknown]
  - Dehydration [Unknown]
  - Hip fracture [Unknown]
  - Femur fracture [Unknown]
  - Internal fixation of fracture [Unknown]
  - Open reduction of fracture [Unknown]
  - Bone graft [Unknown]
  - Adverse event [Unknown]
  - Osteonecrosis of jaw [Not Recovered/Not Resolved]
  - Osteomyelitis [Not Recovered/Not Resolved]
  - Depression [Not Recovered/Not Resolved]
  - Anxiety [Not Recovered/Not Resolved]
  - Abscess jaw [Not Recovered/Not Resolved]
  - Osteopenia [Unknown]
  - Intervertebral disc protrusion [Unknown]
  - Intervertebral disc protrusion [Unknown]
  - Spondylolisthesis [Unknown]
  - Night sweats [Unknown]
  - Local swelling [Unknown]
  - Cellulitis [Unknown]
  - Tooth abscess [Unknown]
  - Folliculitis [Not Recovered/Not Resolved]
  - Neuralgia [Unknown]
  - Dermatosis [Unknown]
  - Impetigo [Unknown]
  - Blepharitis [Unknown]
  - Acne [Unknown]
  - Mental disorder [Unknown]
  - Excoriation [Not Recovered/Not Resolved]
  - Oral herpes [Unknown]
  - Menopause [Unknown]
  - Carbuncle [Unknown]
  - Submandibular mass [Unknown]
  - Actinomycosis [Unknown]
  - Chlamydial infection [Unknown]
  - Weight decreased [Unknown]
  - Decreased appetite [Unknown]
  - Malaise [Unknown]
  - Lymphadenopathy [Unknown]
  - Venous thrombosis [Unknown]
  - Wound infection [Unknown]
  - Oral disorder [Not Recovered/Not Resolved]
  - Dermatillomania [Unknown]
  - Adverse drug reaction [Recovered/Resolved]
  - Hypersomnia [Unknown]
  - Adverse drug reaction [Unknown]
  - Migraine [Unknown]
  - Panic attack [Unknown]
  - Attention deficit/hyperactivity disorder [Unknown]
  - Speech disorder [Unknown]
  - Sedation [Unknown]
  - Adverse drug reaction [Unknown]
  - Skin infection [Unknown]
  - Restless legs syndrome [Unknown]
  - Confusional state [Unknown]
  - Pain [Not Recovered/Not Resolved]
  - Gastrostomy [Unknown]
  - Phobic avoidance [Unknown]
  - Edentulous [Unknown]
  - Fall [Unknown]
  - Fall [Unknown]
  - International normalised ratio abnormal [Unknown]
  - Fall [Unknown]
  - Incorrect dose administered [Unknown]
  - Somnolence [Unknown]
  - Flight of ideas [Unknown]
  - Haematoma [Unknown]
  - Laceration [Unknown]
  - Fall [Unknown]
  - Body temperature increased [Unknown]
  - Speech disorder [Unknown]
  - Coordination abnormal [Unknown]
  - Haemorrhage [Unknown]
  - Weight decreased [Unknown]
  - Fatigue [Unknown]
  - Neuropathy peripheral [Unknown]
  - Urinary tract infection [Unknown]
  - Amnesia [Unknown]
  - Burning sensation [Unknown]
  - Genital prolapse [Unknown]
  - Fall [Unknown]
  - Vaginal discharge [Unknown]
  - Fungal infection [Unknown]
  - Deep vein thrombosis [Unknown]
  - Hypertonic bladder [Unknown]
  - Pelvic pain [Unknown]
  - Pain [Unknown]
  - Insomnia [Unknown]
  - Agitation [Unknown]
  - Dysuria [Unknown]
  - Contusion [Unknown]
  - Contusion [Unknown]
  - Haematoma [Unknown]
  - Dental caries [Unknown]
  - Muscle spasms [Recovered/Resolved]
  - Musculoskeletal chest pain [Unknown]
  - Mouth ulceration [Not Recovered/Not Resolved]
  - Abdominal discomfort [Unknown]
  - Dysphagia [Unknown]
  - Vertigo [Unknown]
